FAERS Safety Report 11632294 (Version 3)
Quarter: 2019Q1

REPORT INFORMATION
  Report Type: Spontaneous
  Country: US (occurrence: US)
  Receive Date: 20151015
  Receipt Date: 20190131
  Transmission Date: 20190417
  Serious: No
  Sender: FDA-Public Use
  Company Number: US-ASTRAZENECA-2015SE97008

PATIENT
  Sex: Male
  Weight: 113.4 kg

DRUGS (3)
  1. METFORMIN [Concomitant]
     Active Substance: METFORMIN HYDROCHLORIDE
     Indication: DIABETES MELLITUS
  2. BYDUREON [Suspect]
     Active Substance: EXENATIDE
     Indication: TYPE 2 DIABETES MELLITUS
     Dosage: 2 MG ONCE A WEEK, KIT
     Route: 058
     Dates: start: 2015, end: 2015
  3. BYDUREON [Suspect]
     Active Substance: EXENATIDE
     Indication: TYPE 2 DIABETES MELLITUS
     Dosage: 2 MG ONCE A WEEK, DUAL CHAMBER PEN
     Route: 058
     Dates: start: 201507

REACTIONS (6)
  - Underdose [Recovered/Resolved with Sequelae]
  - Injection site pain [Recovered/Resolved]
  - Device issue [Unknown]
  - Injection site extravasation [Recovered/Resolved with Sequelae]
  - Intentional product misuse [Unknown]
  - Wrong technique in device usage process [Unknown]
